FAERS Safety Report 10173041 (Version 1)
Quarter: 2014Q2

REPORT INFORMATION
  Report Type: Report from Study
  Country: BE (occurrence: BE)
  Receive Date: 20140515
  Receipt Date: 20140515
  Transmission Date: 20141212
  Serious: Yes (Death)
  Sender: FDA-Public Use
  Company Number: PHHY2014BE058680

PATIENT
  Age: 76 Year
  Sex: 0

DRUGS (1)
  1. CGP 57148B [Suspect]
     Indication: MASTOCYTOSIS

REACTIONS (1)
  - Death [Fatal]
